FAERS Safety Report 19144493 (Version 2)
Quarter: 2021Q2

REPORT INFORMATION
  Report Type: Spontaneous
  Country: GR (occurrence: GR)
  Receive Date: 20210416
  Receipt Date: 20210531
  Transmission Date: 20210717
  Serious: No
  Sender: FDA-Public Use
  Company Number: GR-AMGEN-GRCSP2021055819

PATIENT

DRUGS (1)
  1. OTEZLA [Suspect]
     Active Substance: APREMILAST
     Indication: PSORIASIS
     Dosage: UNK
     Route: 065

REACTIONS (12)
  - Weight decreased [Unknown]
  - Gastrointestinal disorder [Unknown]
  - Tachycardia [Unknown]
  - Dyspepsia [Unknown]
  - Headache [Unknown]
  - Treatment failure [Unknown]
  - Therapeutic product effect decreased [Unknown]
  - Affective disorder [Unknown]
  - Hypertension [Unknown]
  - Malaise [Unknown]
  - Insomnia [Unknown]
  - Faeces soft [Unknown]
